FAERS Safety Report 23877558 (Version 1)
Quarter: 2024Q2

REPORT INFORMATION
  Report Type: Spontaneous
  Country: PL (occurrence: PL)
  Receive Date: 20240521
  Receipt Date: 20240521
  Transmission Date: 20240716
  Serious: Yes (Other)
  Sender: FDA-Public Use
  Company Number: PL-ORPHANEU-2024003547

PATIENT

DRUGS (9)
  1. PASIREOTIDE [Suspect]
     Active Substance: PASIREOTIDE
     Indication: Pituitary-dependent Cushing^s syndrome
     Dosage: FIRST DOSE
     Dates: start: 201909, end: 201909
  2. PASIREOTIDE [Suspect]
     Active Substance: PASIREOTIDE
     Dosage: SECOND DOSE
     Dates: start: 201910, end: 201910
  3. PASIREOTIDE [Suspect]
     Active Substance: PASIREOTIDE
     Dosage: THIRD DOSE
     Dates: start: 201911, end: 201911
  4. PASIREOTIDE [Suspect]
     Active Substance: PASIREOTIDE
     Dosage: FOURTH DOSE
     Dates: start: 202003, end: 202003
  5. PASIREOTIDE [Suspect]
     Active Substance: PASIREOTIDE
     Dosage: FIFTH DOSE
     Dates: start: 202006, end: 202006
  6. PASIREOTIDE [Suspect]
     Active Substance: PASIREOTIDE
     Dosage: SIXTH DOSE
     Dates: start: 202103, end: 202103
  7. PASIREOTIDE [Suspect]
     Active Substance: PASIREOTIDE
     Dosage: SEVENTH DOSE
     Dates: start: 202104, end: 202104
  8. PASIREOTIDE [Suspect]
     Active Substance: PASIREOTIDE
     Dosage: EIGHTH DOSE
     Dates: start: 202210, end: 202210
  9. METYRAPONE [Suspect]
     Active Substance: METYRAPONE
     Indication: Pituitary-dependent Cushing^s syndrome
     Dosage: UNK

REACTIONS (2)
  - Hyperadrenocorticism [Unknown]
  - Blood corticotrophin increased [Unknown]

NARRATIVE: CASE EVENT DATE: 20190901
